FAERS Safety Report 5822228-6 (Version None)
Quarter: 2008Q3

REPORT INFORMATION
  Report Type: 
  Country: None (occurrence: None)
  Receive Date: 20080725
  Receipt Date: 20080529
  Transmission Date: 20090109
  Serious: No
  Sender: FDA-Public Use
  Company Number: US-AMGEN-KDL283607

PATIENT
  Age: 29 Year
  Sex: Female

DRUGS (2)
  1. EPOGEN [Suspect]
     Indication: DIALYSIS
  2. ARANESP [Concomitant]
     Indication: DIALYSIS

REACTIONS (1)
  - INJECTION SITE HAEMATOMA [None]
